FAERS Safety Report 11874047 (Version 1)
Quarter: 2015Q4

REPORT INFORMATION
  Report Type: Spontaneous
  Country: US (occurrence: US)
  Receive Date: 20151229
  Receipt Date: 20151229
  Transmission Date: 20160305
  Serious: Yes (Hospitalization)
  Sender: FDA-Public Use
  Company Number: US-AMGEN-USASP2015138780

PATIENT
  Sex: Female

DRUGS (1)
  1. NEULASTA [Suspect]
     Active Substance: PEGFILGRASTIM
     Indication: PRODUCT USED FOR UNKNOWN INDICATION
     Dosage: UNK
     Route: 065

REACTIONS (10)
  - Thermal burn [Unknown]
  - Blood glucose decreased [Unknown]
  - Asthenia [Unknown]
  - Feeling abnormal [Unknown]
  - Presyncope [Unknown]
  - Dysstasia [Unknown]
  - Diarrhoea [Unknown]
  - Fatigue [Unknown]
  - Mobility decreased [Unknown]
  - Dyspnoea [Unknown]

NARRATIVE: CASE EVENT DATE: 20151101
